FAERS Safety Report 5008729-1 (Version None)
Quarter: 2006Q2

REPORT INFORMATION
  Report Type: 
  Country: None (occurrence: None)
  Receive Date: 20060523
  Receipt Date: 20060522
  Transmission Date: 20061013
  Serious: Yes (Other)
  Sender: FDA-Public Use
  Company Number: 200612767EU

PATIENT
  Age: 59 Year
  Sex: Female

DRUGS (7)
  1. NICODERM [Suspect]
     Indication: SMOKING CESSATION THERAPY
     Dosage: 21MG PER DAY
     Route: 062
     Dates: start: 20060427, end: 20060429
  2. METFORMIN [Concomitant]
     Route: 048
  3. ANTI-HYPERLIPIDEMIC [Concomitant]
     Route: 048
  4. ALLOPURINOL [Concomitant]
     Route: 048
     Dates: start: 20020101
  5. OXAZEPAM [Concomitant]
     Indication: ANXIETY
     Route: 048
     Dates: start: 20050101
  6. TOLBUTAMIDE [Concomitant]
     Route: 048
  7. VALSARTAN [Concomitant]
     Route: 048

REACTIONS (5)
  - ANXIETY [None]
  - HYPOAESTHESIA [None]
  - PANIC ATTACK [None]
  - VERTIGO [None]
  - VISION BLURRED [None]
